FAERS Safety Report 6551158-X (Version None)
Quarter: 2010Q1

REPORT INFORMATION
  Report Type: 
  Country: None (occurrence: None)
  Receive Date: 20100121
  Receipt Date: 20100107
  Transmission Date: 20100710
  Serious: Yes (Other)
  Sender: FDA-Public Use
  Company Number: 2010AP000057

PATIENT
  Age: 68 Year
  Sex: Female

DRUGS (7)
  1. RAMIPRIL [Suspect]
     Indication: HYPERTENSION
     Dosage: 1.25 MG; QD PO
     Route: 048
     Dates: start: 20090820, end: 20090822
  2. BYETTA [Suspect]
     Indication: DIABETES MELLITUS
     Dosage: 10 ?G; BID SC
     Route: 058
     Dates: start: 20090201
  3. ALLOPURINOL [Concomitant]
  4. COLCHICINE (COLCHICINE) [Concomitant]
  5. FUROSEMIDE [Concomitant]
  6. ACETAMINOPHEN [Concomitant]
  7. PERINDOPRIL ERBUMINE [Concomitant]

REACTIONS (4)
  - DERMATITIS ALLERGIC [None]
  - PRURITUS [None]
  - SKIN SWELLING [None]
  - URTICARIA [None]
